FAERS Safety Report 15375047 (Version 1)
Quarter: 2018Q3

REPORT INFORMATION
  Report Type: Spontaneous
  Country: US (occurrence: US)
  Receive Date: 20180906
  Receipt Date: 20180906
  Transmission Date: 20181010
  Serious: Yes (Life-Threatening)
  Sender: FDA-Public Use
  Company Number: None

PATIENT
  Age: 69 Year
  Sex: Female
  Weight: 85.05 kg

DRUGS (7)
  1. METFORMIN [Concomitant]
     Active Substance: METFORMIN HYDROCHLORIDE
  2. NOVOLOG [Concomitant]
     Active Substance: INSULIN ASPART
  3. METOPROLOL TARTRATE. [Concomitant]
     Active Substance: METOPROLOL TARTRATE
  4. ENOXAPARIN SODIUM INJECTION [Suspect]
     Active Substance: ENOXAPARIN SODIUM
     Indication: INTERNATIONAL NORMALISED RATIO
     Dosage: ?          QUANTITY:1 INJECTION(S);?
     Route: 058
     Dates: start: 20180906, end: 20180906
  5. LANTUS [Concomitant]
     Active Substance: INSULIN GLARGINE
  6. AMLODEPINE [Concomitant]
  7. VICTOZA [Concomitant]
     Active Substance: LIRAGLUTIDE

REACTIONS (5)
  - Nausea [None]
  - Headache [None]
  - Haemorrhage [None]
  - Vomiting [None]
  - Coordination abnormal [None]

NARRATIVE: CASE EVENT DATE: 20180906
